FAERS Safety Report 5348988-9 (Version None)
Quarter: 2007Q2

REPORT INFORMATION
  Report Type: 
  Country: None (occurrence: None)
  Receive Date: 20070607
  Receipt Date: 20070530
  Transmission Date: 20071010
  Serious: Yes (Other)
  Sender: FDA-Public Use
  Company Number: US-JNJFOC-20070600200

PATIENT
  Sex: Male
  Weight: 68.04 kg

DRUGS (4)
  1. ULTRAM [Suspect]
     Indication: PAIN
     Dosage: 500MG TO 2000MG,  50MG 10-40 TABLETS A DAY
     Route: 048
  2. EFFEXOR [Concomitant]
     Indication: ANXIETY
     Route: 065
  3. EFFEXOR [Concomitant]
     Indication: DEPRESSION
     Route: 065
  4. NEURONTIN [Concomitant]
     Indication: NEURALGIA
     Route: 065

REACTIONS (4)
  - CONVULSION [None]
  - DRUG WITHDRAWAL SYNDROME [None]
  - OVERDOSE [None]
  - SELF-MEDICATION [None]
